FAERS Safety Report 4704103-3 (Version None)
Quarter: 2005Q2

REPORT INFORMATION
  Report Type: 
  Country: None (occurrence: None)
  Receive Date: 20050629
  Receipt Date: 20050614
  Transmission Date: 20051028
  Serious: No
  Sender: FDA-Public Use
  Company Number: 11554

PATIENT
  Age: 40 Year
  Sex: Female

DRUGS (3)
  1. MITOXANTRONE [Suspect]
     Indication: BREAST CANCER
     Dosage: 48 MG/M2 TOTAL
  2. MITOMYCIN [Suspect]
     Indication: BREAST CANCER
     Dosage: 48 MG/M2 TOTAL
  3. METHOTREXATE [Suspect]
     Indication: BREAST CANCER
     Dosage: 210 MG/M2 TOTAL

REACTIONS (1)
  - ACUTE PROMYELOCYTIC LEUKAEMIA [None]
